FAERS Safety Report 4698823-7 (Version None)
Quarter: 2005Q2

REPORT INFORMATION
  Report Type: 
  Country: None (occurrence: None)
  Receive Date: 20050623
  Receipt Date: 20050620
  Transmission Date: 20051028
  Serious: Yes (Hospitalization)
  Sender: FDA-Public Use
  Company Number: 05-05-0943

PATIENT
  Age: 22 Year
  Sex: Male
  Weight: 92.9874 kg

DRUGS (1)
  1. CLOZAPINE [Suspect]
     Dosage: 100-300MG QD ORAL
     Route: 048
     Dates: start: 20020601

REACTIONS (2)
  - DRUG ABUSER [None]
  - PELVIC FRACTURE [None]
